FAERS Safety Report 7650837-0 (Version None)
Quarter: 2011Q3

REPORT INFORMATION
  Report Type: 
  Country: None (occurrence: None)
  Receive Date: 20110802
  Receipt Date: 20101202
  Transmission Date: 20111222
  Serious: Yes (Death, Other)
  Sender: FDA-Public Use
  Company Number: GR-ASTRAZENECA-2010SE57212

PATIENT
  Age: 47 Year
  Sex: Female
  Weight: 65 kg

DRUGS (6)
  1. UNSPECIFIED MEDICATION FOR MIGRAINE [Concomitant]
     Indication: MIGRAINE
  2. INVEGA [Concomitant]
     Indication: MAJOR DEPRESSION
     Route: 048
     Dates: start: 20100701
  3. LORAZEPAM [Concomitant]
     Indication: MAJOR DEPRESSION
     Route: 048
  4. INDERAL [Concomitant]
     Indication: TACHYCARDIA
     Route: 048
  5. SEROQUEL [Suspect]
     Indication: MAJOR DEPRESSION
     Dosage: 400-800 MG OD
     Route: 048
     Dates: start: 20050101, end: 20100701
  6. MINITRAN [Concomitant]
     Indication: MAJOR DEPRESSION
     Dosage: 2+25 MG TID
     Route: 048
     Dates: start: 20091001

REACTIONS (4)
  - MYOCARDIAL INFARCTION [None]
  - WEIGHT INCREASED [None]
  - OEDEMA PERIPHERAL [None]
  - ARTERIOSCLEROSIS CORONARY ARTERY [None]
